FAERS Safety Report 5064530-4 (Version None)
Quarter: 2006Q3

REPORT INFORMATION
  Report Type: 
  Country: None (occurrence: None)
  Receive Date: 20060728
  Receipt Date: 20060720
  Transmission Date: 20061208
  Serious: Yes (Hospitalization)
  Sender: FDA-Public Use
  Company Number: GR-ABBOTT-06P-066-0338585-00

PATIENT
  Age: 50 Year
  Sex: Female
  Weight: 85 kg

DRUGS (5)
  1. HUMIRA [Suspect]
     Indication: RHEUMATOID ARTHRITIS
     Route: 058
     Dates: start: 20060719, end: 20060719
  2. LEFLUNOMIDE [Concomitant]
     Indication: RHEUMATOID ARTHRITIS
     Route: 048
     Dates: start: 20050101, end: 20050101
  3. METHOTREXATE [Concomitant]
     Indication: RHEUMATOID ARTHRITIS
     Route: 048
     Dates: start: 20040101, end: 20050101
  4. ISONIAZID [Concomitant]
     Indication: TUBERCULOSIS
     Route: 048
     Dates: start: 20060601
  5. PYRIDOXINE HYDROCHLORIDE INJ [Concomitant]
     Indication: TUBERCULOSIS
     Route: 048
     Dates: start: 20060601

REACTIONS (5)
  - HYPERSENSITIVITY [None]
  - PHARYNGOLARYNGEAL PAIN [None]
  - PYREXIA [None]
  - SYNCOPE [None]
  - TUBERCULOSIS SKIN TEST POSITIVE [None]
